FAERS Safety Report 23763365 (Version 3)
Quarter: 2024Q3

REPORT INFORMATION
  Report Type: Spontaneous
  Country: JP (occurrence: None)
  Receive Date: 20240419
  Receipt Date: 20240814
  Transmission Date: 20241016
  Serious: Yes (Life-Threatening, Disabling, Other)
  Sender: ASTRAZENECA
  Company Number: 2024A090487

PATIENT
  Age: 63 Year
  Sex: Female
  Weight: 52 kg

DRUGS (7)
  1. LYNPARZA [Suspect]
     Active Substance: OLAPARIB
     Indication: Ovarian cancer recurrent
     Route: 048
     Dates: start: 20230630, end: 20240308
  2. CARBOPLATIN [Suspect]
     Active Substance: CARBOPLATIN
     Indication: Ovarian cancer recurrent
     Dosage: DOSE UNKNOWN
     Dates: start: 20230112, end: 20230609
  3. AVASTIN [Suspect]
     Active Substance: BEVACIZUMAB
     Indication: Ovarian cancer recurrent
     Dosage: DOSE UNKNOWN
     Dates: start: 20230112, end: 20230609
  4. DEXAMETHASONE [Concomitant]
     Active Substance: DEXAMETHASONE
     Dosage: 5.0G AS REQUIRED
     Route: 049
     Dates: start: 20240630
  5. HERBALS [Concomitant]
     Active Substance: HERBALS
     Route: 048
     Dates: start: 20230922, end: 20231005
  6. METHYLCOBALAMIN [Concomitant]
     Active Substance: METHYLCOBALAMIN
     Route: 048
     Dates: start: 20230922, end: 20231208
  7. SHAKUYAKUKANZOTO [Concomitant]
     Active Substance: HERBALS
     Route: 048
     Dates: start: 20231013, end: 20231208

REACTIONS (5)
  - Myelodysplastic syndrome [Not Recovered/Not Resolved]
  - Leukaemia [Unknown]
  - Metastases to peritoneum [Unknown]
  - Metastases to lymph nodes [Unknown]
  - Pyrexia [Recovered/Resolved]

NARRATIVE: CASE EVENT DATE: 20230707
